FAERS Safety Report 22237078 (Version 1)
Quarter: 2023Q2

REPORT INFORMATION
  Report Type: Spontaneous
  Country: US (occurrence: US)
  Receive Date: 20230421
  Receipt Date: 20230421
  Transmission Date: 20230722
  Serious: Yes (Other)
  Sender: FDA-Public Use
  Company Number: US-AUROBINDO-AUR-APL-2023-031122

PATIENT
  Age: 67 Year
  Sex: Female

DRUGS (1)
  1. FLECAINIDE [Suspect]
     Active Substance: FLECAINIDE
     Indication: Drug therapy
     Dosage: UNK
     Route: 065

REACTIONS (2)
  - Cardiomyopathy [Recovered/Resolved]
  - Bundle branch block left [Recovered/Resolved]
